FAERS Safety Report 4643450-0 (Version None)
Quarter: 2005Q2

REPORT INFORMATION
  Report Type: 
  Country: None (occurrence: None)
  Receive Date: 20050324
  Receipt Date: 20050112
  Transmission Date: 20051028
  Serious: Yes (Life-Threatening, Hospitalization)
  Sender: FDA-Public Use
  Company Number: 208345

PATIENT
  Age: 62 Year
  Sex: Male

DRUGS (12)
  1. AVASTIN [Suspect]
     Indication: COLON CANCER METASTATIC
     Dosage: INTRAVENOUS
     Route: 042
     Dates: start: 20040719, end: 20040802
  2. LEUCOVORIN CALCIUM [Concomitant]
  3. FLUOROURACIL [Concomitant]
  4. IRINOTECAN HCL [Concomitant]
  5. KYTRIL [Concomitant]
  6. DECADRON (DEXSAMETHASONE) [Concomitant]
  7. COUMADIN [Concomitant]
  8. MS04 (MORPHINE SULFATE) [Concomitant]
  9. LABETALOL (LABETALOL HYDROCHLORIDE) [Concomitant]
  10. NIFEDIPINE [Concomitant]
  11. COLACE (DOCUSATE SODIUM) [Concomitant]
  12. MULTIVITAMIN (MULTIVITAMINS NOS) [Concomitant]

REACTIONS (1)
  - BRAIN STEM HAEMORRHAGE [None]
